FAERS Safety Report 7023904-2 (Version None)
Quarter: 2010Q4

REPORT INFORMATION
  Report Type: 
  Country: None (occurrence: None)
  Receive Date: 20101001
  Receipt Date: 20100922
  Transmission Date: 20110411
  Serious: Yes (Other)
  Sender: FDA-Public Use
  Company Number: CA-JNJFOC-20100908002

PATIENT
  Sex: Male

DRUGS (9)
  1. SIMPONI [Suspect]
     Indication: RHEUMATOID ARTHRITIS
     Route: 058
  2. SIMPONI [Suspect]
     Route: 058
  3. SIMPONI [Suspect]
     Route: 058
  4. METHOTREXATE [Concomitant]
  5. ANTIBIOTIC [Concomitant]
     Indication: PULMONARY MASS
  6. FOLIC ACID [Concomitant]
  7. PREDNISONE [Concomitant]
  8. ELTROXIN [Concomitant]
  9. ZANTAC [Concomitant]

REACTIONS (2)
  - HAEMOPTYSIS [None]
  - OROPHARYNGEAL PAIN [None]
